FAERS Safety Report 6094590-3 (Version None)
Quarter: 2009Q1

REPORT INFORMATION
  Report Type: 
  Country: None (occurrence: None)
  Receive Date: 20090224
  Receipt Date: 20090218
  Transmission Date: 20090719
  Serious: Yes (Hospitalization)
  Sender: FDA-Public Use
  Company Number: 200913421GPV

PATIENT
  Age: 61 Year
  Sex: Male
  Weight: 79 kg

DRUGS (7)
  1. FLUDARA [Suspect]
     Indication: CHRONIC LYMPHOCYTIC LEUKAEMIA
     Dosage: 80 MG, ORAL
     Route: 048
     Dates: start: 20080715, end: 20081203
  2. CAMPATH [Suspect]
     Indication: CHRONIC LYMPHOCYTIC LEUKAEMIA
     Dosage: 30 MG, SUBCUTANEOUS
     Route: 058
     Dates: start: 20080715, end: 20081203
  3. CYCLOPHOSPHAMIDE [Suspect]
     Indication: CHRONIC LYMPHOCYTIC LEUKAEMIA
     Dosage: 500 MG, ORAL
     Route: 048
     Dates: start: 20080715, end: 20081203
  4. BACTRIM [Concomitant]
  5. FOLIC ACID [Concomitant]
  6. ROVALCYTE (VALGANCICLOVIR) [Concomitant]
  7. VFEND [Concomitant]

REACTIONS (4)
  - BK VIRUS INFECTION [None]
  - BRONCHOPULMONARY ASPERGILLOSIS [None]
  - NEUTROPENIA [None]
  - PROSTATITIS [None]
